FAERS Safety Report 8972411 (Version 1)
Quarter: 2012Q4

REPORT INFORMATION
  Report Type: 
  Country: ES (occurrence: ES)
  Receive Date: 20121218
  Receipt Date: 20121218
  Transmission Date: 20130627
  Serious: Yes (Hospitalization)
  Sender: FDA-Public Use
  Company Number: ES-ROCHE-1170210

PATIENT
  Age: 43 Year
  Sex: Female

DRUGS (4)
  1. CELLCEPT [Suspect]
     Indication: CROHN^S DISEASE
     Route: 048
     Dates: start: 2001
  2. INFLIXIMAB [Interacting]
     Indication: CROHN^S DISEASE
     Route: 042
     Dates: start: 2008
  3. PREDNISONE [Interacting]
     Indication: ARTHRITIS
     Route: 048
     Dates: start: 2005
  4. TACROLIMUS [Interacting]
     Indication: ARTHRITIS
     Route: 048
     Dates: start: 2010

REACTIONS (2)
  - Pyelonephritis acute [Recovered/Resolved]
  - Drug interaction [Unknown]
